FAERS Safety Report 4510208-2 (Version None)
Quarter: 2004Q4

REPORT INFORMATION
  Report Type: 
  Country: None (occurrence: None)
  Receive Date: 20041118
  Receipt Date: 20041111
  Transmission Date: 20050328
  Serious: Yes (Death, Hospitalization)
  Sender: FDA-Public Use
  Company Number: STA-AE-04-MTX-564

PATIENT
  Age: 54 Year
  Sex: Male

DRUGS (4)
  1. METHOTREXATE [Suspect]
     Indication: RHEUMATOID ARTHRITIS
     Dosage: 15 MG 1X PER 1 DAY,
  2. PREDNISOLONE [Concomitant]
  3. FOLIC ACID [Concomitant]
  4. THYROXIN (LEVOTHYROXINE SODIUM) [Concomitant]

REACTIONS (7)
  - AORTIC OCCLUSION [None]
  - BLOOD PRESSURE DECREASED [None]
  - CIRCULATORY COLLAPSE [None]
  - DEHYDRATION [None]
  - DIABETES MELLITUS [None]
  - PERIPHERAL CIRCULATORY FAILURE [None]
  - RENAL IMPAIRMENT [None]
